FAERS Safety Report 19798735 (Version 2)
Quarter: 2021Q3

REPORT INFORMATION
  Report Type: Spontaneous
  Country: US (occurrence: US)
  Receive Date: 20210907
  Receipt Date: 20210910
  Transmission Date: 20211014
  Serious: Yes (Hospitalization, Other)
  Sender: FDA-Public Use
  Company Number: US-PFIZER INC-202101147408

PATIENT
  Age: 64 Year
  Sex: Male
  Weight: 117.93 kg

DRUGS (1)
  1. CHANTIX [Suspect]
     Active Substance: VARENICLINE TARTRATE
     Indication: SMOKING CESSATION THERAPY
     Dosage: 1 DF, TWICE A DAY (1 TABLET BY MOUTH IN THE DAY AND AT NIGHT HE TAKES ANOTHER ONE)
     Route: 048
     Dates: start: 2019

REACTIONS (4)
  - Urticaria [Recovered/Resolved]
  - Myocardial infarction [Unknown]
  - Neoplasm malignant [Unknown]
  - Rash [Unknown]
